FAERS Safety Report 15131305 (Version 1)
Quarter: 2018Q3

REPORT INFORMATION
  Report Type: Report from Study
  Country: ES (occurrence: ES)
  Receive Date: 20180711
  Receipt Date: 20180711
  Transmission Date: 20181010
  Serious: Yes (Hospitalization)
  Sender: FDA-Public Use
  Company Number: ES-BAYER-2018-125867

PATIENT
  Age: 90 Year
  Sex: Male

DRUGS (3)
  1. ADIRO 100 MG GASTRORRESISTENT TABLETS EFG, 30 TABLETS [Suspect]
     Active Substance: ASPIRIN
     Indication: PERIPHERAL ISCHAEMIA
     Dosage: 100 MG, UNK
     Route: 048
     Dates: start: 20170415
  2. DIGOXIN ALMUS [Concomitant]
     Indication: ATRIAL FIBRILLATION
     Dosage: .25 MG, UNK
     Route: 048
     Dates: start: 20050420
  3. SINTROM [Interacting]
     Active Substance: ACENOCOUMAROL
     Indication: ATRIAL FIBRILLATION
     Dosage: 1 MG, UNK
     Route: 048
     Dates: start: 20160121, end: 20160419

REACTIONS (3)
  - Hypocoagulable state [Recovered/Resolved]
  - Coagulopathy [Recovered/Resolved]
  - Anaemia [Recovering/Resolving]

NARRATIVE: CASE EVENT DATE: 20170419
